FAERS Safety Report 5755183-8 (Version None)
Quarter: 2008Q2

REPORT INFORMATION
  Report Type: 
  Country: None (occurrence: None)
  Receive Date: 20080528
  Receipt Date: 20080516
  Transmission Date: 20081010
  Serious: Yes (Hospitalization)
  Sender: FDA-Public Use
  Company Number: 163-20785-08050598

PATIENT
  Age: 67 Year
  Sex: Male
  Weight: 94.8 kg

DRUGS (15)
  1. THALOMID [Suspect]
     Indication: MULTIPLE MYELOMA
     Dosage: 50 MG, EVERY OTHER DAY, ORAL; 100 MG, EVERY OTHER DAY, ORAL
     Route: 048
     Dates: start: 20060503, end: 20070101
  2. THALOMID [Suspect]
     Indication: MULTIPLE MYELOMA
     Dosage: 50 MG, EVERY OTHER DAY, ORAL; 100 MG, EVERY OTHER DAY, ORAL
     Route: 048
     Dates: end: 20080403
  3. DEXAMETHASONE [Suspect]
     Indication: MULTIPLE MYELOMA
     Dosage: 12 MG, DAYS 1-4 AND 8-11, ORAL; 20-40 MG, DAYS 1-4 AND 8-11, ORAL
     Route: 048
     Dates: start: 20060503, end: 20070101
  4. DEXAMETHASONE [Suspect]
     Indication: MULTIPLE MYELOMA
     Dosage: 12 MG, DAYS 1-4 AND 8-11, ORAL; 20-40 MG, DAYS 1-4 AND 8-11, ORAL
     Route: 048
     Dates: end: 20080320
  5. VELCADE [Suspect]
     Indication: MULTIPLE MYELOMA
     Dosage: 2 MG/M2, DAYS 1, 4, 8 + 11, INTRAVENOUS; 1 MG/M2, INTRAVENOUS
     Route: 042
     Dates: end: 20080320
  6. VELCADE [Suspect]
     Indication: MULTIPLE MYELOMA
     Dosage: 2 MG/M2, DAYS 1, 4, 8 + 11, INTRAVENOUS; 1 MG/M2, INTRAVENOUS
     Route: 042
     Dates: start: 20060503
  7. LEVOTHYROXINE SODIUM (LEVOTHYROXINE SODIUM) (25 MICROGRAM, TABLETS) [Concomitant]
  8. VYTORIN (INEGY) (TABLETS) [Concomitant]
  9. ACYCLOVIR (ACICLOVIR) (400 MILLIGRAM) [Concomitant]
  10. ASPIRIN [Concomitant]
  11. GLIPIZIDE (GLIPIZIDE) (5 MILLIGRAM) [Concomitant]
  12. LYRICA (PREGABALIN) (100 MILLIGRAM) [Concomitant]
  13. METFORMIN (METFORMIN) (1000 MILLIGRAM) [Concomitant]
  14. MULTIVITAMINS (MULTIVITAMINS) (TABLETS) [Concomitant]
  15. TOPROL XL (METOPROLOL SUCCINATE) (50 MILLIGRAM, TABLETS) [Concomitant]

REACTIONS (30)
  - ABDOMINAL ABSCESS [None]
  - ABSCESS INTESTINAL [None]
  - BLOOD CULTURE POSITIVE [None]
  - CATHETER RELATED COMPLICATION [None]
  - COLONIC OBSTRUCTION [None]
  - COLONIC STENOSIS [None]
  - CONDITION AGGRAVATED [None]
  - DIVERTICULITIS [None]
  - DYSPHAGIA [None]
  - DYSPNOEA [None]
  - ENTEROCOCCAL INFECTION [None]
  - FUNGAL INFECTION [None]
  - GASTROINTESTINAL STOMA COMPLICATION [None]
  - HYPOTENSION [None]
  - INTESTINAL ISCHAEMIA [None]
  - LARGE INTESTINE PERFORATION [None]
  - LOCALISED INTRAABDOMINAL FLUID COLLECTION [None]
  - MULTIPLE-DRUG RESISTANCE [None]
  - NAUSEA [None]
  - POST PROCEDURAL COMPLICATION [None]
  - POST PROCEDURAL SEPSIS [None]
  - PSEUDOMONAS INFECTION [None]
  - PULMONARY EMBOLISM [None]
  - SEPSIS [None]
  - STEM CELL TRANSPLANT [None]
  - SURGICAL PROCEDURE REPEATED [None]
  - URINE OUTPUT DECREASED [None]
  - VOMITING [None]
  - WOUND DEHISCENCE [None]
  - WOUND INFECTION [None]
